FAERS Safety Report 12305838 (Version 1)
Quarter: 2016Q2

REPORT INFORMATION
  Report Type: Spontaneous
  Country: US (occurrence: US)
  Receive Date: 20160426
  Receipt Date: 20160426
  Transmission Date: 20160815
  Serious: Yes (Hospitalization)
  Sender: FDA-Public Use
  Company Number: US-PFIZER INC-2016223619

PATIENT
  Age: 1 Year
  Sex: Male

DRUGS (18)
  1. VANCOMYCIN HCL [Suspect]
     Active Substance: VANCOMYCIN HYDROCHLORIDE
     Dosage: UNK
  2. FENTANYL. [Suspect]
     Active Substance: FENTANYL
     Dosage: UNK
  3. FUROSEMIDE. [Suspect]
     Active Substance: FUROSEMIDE
     Dosage: UNK
  4. DEXMEDETOMIDINE. [Suspect]
     Active Substance: DEXMEDETOMIDINE
     Dosage: UNK
  5. CEFTRIAXONE SODIUM. [Suspect]
     Active Substance: CEFTRIAXONE SODIUM
     Dosage: UNK
  6. ROCURONIUM BROMIDE. [Suspect]
     Active Substance: ROCURONIUM BROMIDE
     Dosage: UNK
  7. BUDESONIDE. [Suspect]
     Active Substance: BUDESONIDE
     Dosage: UNK
  8. PARACETAMOL [Suspect]
     Active Substance: ACETAMINOPHEN
     Dosage: UNK
  9. VECURONIUM BROMIDE. [Suspect]
     Active Substance: VECURONIUM BROMIDE
     Dosage: UNK
  10. DOCUSATE [Suspect]
     Active Substance: DOCUSATE
     Dosage: UNK
  11. LANSOPRAZOLE. [Suspect]
     Active Substance: LANSOPRAZOLE
     Dosage: UNK
  12. MIDAZOLAM [Suspect]
     Active Substance: MIDAZOLAM\MIDAZOLAM HYDROCHLORIDE
     Dosage: UNK
  13. IPRATROPIUM [Suspect]
     Active Substance: IPRATROPIUM
     Dosage: UNK
  14. MORPHINE SULFATE. [Suspect]
     Active Substance: MORPHINE SULFATE
     Dosage: UNK
  15. METHYLPREDNISOLONE. [Suspect]
     Active Substance: METHYLPREDNISOLONE
     Dosage: UNK
  16. HYDROCHLOROTHIAZIDE/SPIRONOLACTONE [Suspect]
     Active Substance: HYDROCHLOROTHIAZIDE\SPIRONOLACTONE
     Dosage: UNK
  17. GLYCERIN. [Suspect]
     Active Substance: GLYCERIN
     Dosage: UNK
  18. SALBUTAMOL [Suspect]
     Active Substance: ALBUTEROL
     Dosage: UNK

REACTIONS (16)
  - Electrocardiogram QT prolonged [Not Recovered/Not Resolved]
  - Sinus bradycardia [Not Recovered/Not Resolved]
  - Shock [Not Recovered/Not Resolved]
  - Respiratory depression [Not Recovered/Not Resolved]
  - Chronic kidney disease [Not Recovered/Not Resolved]
  - Hypocalcaemia [Not Recovered/Not Resolved]
  - Sinus node dysfunction [Not Recovered/Not Resolved]
  - Rhabdomyolysis [Not Recovered/Not Resolved]
  - Torsade de pointes [None]
  - Long QT syndrome [Not Recovered/Not Resolved]
  - Respiratory acidosis [Not Recovered/Not Resolved]
  - Bradyarrhythmia [Not Recovered/Not Resolved]
  - Conduction disorder [Not Recovered/Not Resolved]
  - Electrocardiogram repolarisation abnormality [Not Recovered/Not Resolved]
  - Arrhythmia [Not Recovered/Not Resolved]
  - Respiratory failure [Not Recovered/Not Resolved]
